FAERS Safety Report 4519049-3 (Version None)
Quarter: 2004Q4

REPORT INFORMATION
  Report Type: 
  Country: None (occurrence: None)
  Receive Date: 20041201
  Receipt Date: 20041119
  Transmission Date: 20050328
  Serious: Yes (Life-Threatening, Hospitalization)
  Sender: FDA-Public Use
  Company Number: DE-2004-034842

PATIENT
  Age: 68 Year
  Sex: Female
  Weight: 130 kg

DRUGS (6)
  1. ULTRAVIST 300 [Suspect]
     Indication: COMPUTERISED TOMOGRAM ABDOMEN
     Dosage: 130 M1, 1 DOSE, INTRAVENOUS
     Route: 042
     Dates: start: 20041108, end: 20041108
  2. DOPAMIN [Concomitant]
  3. CLEXANE (ENOXAPARAIN SODIUM) [Concomitant]
  4. POTASSIUM (POTASSIUM) [Concomitant]
  5. INSULIN [Concomitant]
  6. NORADRENALINE [Concomitant]

REACTIONS (3)
  - DYSPNOEA [None]
  - SHOCK [None]
  - VENTRICULAR FIBRILLATION [None]
